FAERS Safety Report 22349626 (Version 1)
Quarter: 2023Q2

REPORT INFORMATION
  Report Type: Spontaneous
  Country: GB (occurrence: GB)
  Receive Date: 20230522
  Receipt Date: 20230522
  Transmission Date: 20230722
  Serious: Yes (Other)
  Sender: FDA-Public Use
  Company Number: GB-MACLEODS PHARMA EU LTD-MAC2023041400

PATIENT

DRUGS (7)
  1. TENOFOVIR DISOPROXIL [Suspect]
     Active Substance: TENOFOVIR DISOPROXIL
     Indication: HIV infection
     Dosage: 300 MILLIGRAM, QD
     Route: 065
  2. IBUPROFEN [Suspect]
     Active Substance: IBUPROFEN
     Indication: Myopathy
     Dosage: UNK (AT MONTH 25)
     Route: 065
  3. ROFECOXIB [Suspect]
     Active Substance: ROFECOXIB
     Indication: Myopathy
     Dosage: UNK (AT MONTH 25)
     Route: 065
  4. DIDANOSINE [Concomitant]
     Active Substance: DIDANOSINE
     Indication: HIV infection
     Dosage: 250 MILLIGRAM, QD
     Route: 065
  5. LAMIVUDINE [Concomitant]
     Active Substance: LAMIVUDINE
     Indication: HIV infection
     Dosage: 150 MILLIGRAM, BID
     Route: 065
  6. LOPINAVIR\RITONAVIR [Concomitant]
     Active Substance: LOPINAVIR\RITONAVIR
     Indication: HIV infection
     Dosage: 3 DOSAGE FORM, BID
     Route: 065
  7. IMIDAPRIL [Concomitant]
     Active Substance: IMIDAPRIL
     Indication: Lipodystrophy acquired
     Dosage: UNK (START DATE: DEC 2002)
     Route: 065

REACTIONS (4)
  - Hypophosphataemic osteomalacia [Recovered/Resolved]
  - Pseudofracture [Recovered/Resolved]
  - Acute kidney injury [Recovered/Resolved]
  - Myopathy [Recovered/Resolved]
